FAERS Safety Report 13662740 (Version 12)
Quarter: 2019Q4

REPORT INFORMATION
  Report Type: Report from Study
  Country: None (occurrence: US)
  Receive Date: 20170618
  Receipt Date: 20191106
  Transmission Date: 20200122
  Serious: Yes (Hospitalization, Other)
  Sender: FDA-Public Use
  Company Number: US-ABBVIE-17K-163-1942534-00

PATIENT
  Sex: Female

DRUGS (3)
  1. HUMIRA [Suspect]
     Active Substance: ADALIMUMAB
     Indication: RHEUMATOID ARTHRITIS
     Route: 058
     Dates: start: 2007, end: 201406
  2. HUMIRA [Suspect]
     Active Substance: ADALIMUMAB
     Route: 058
  3. METOPROLOL. [Concomitant]
     Active Substance: METOPROLOL
     Indication: HYPERTENSION

REACTIONS (26)
  - Knee arthroplasty [Recovered/Resolved]
  - Heart rate decreased [Unknown]
  - Femur fracture [Recovered/Resolved]
  - Rotator cuff syndrome [Unknown]
  - Pain in extremity [Recovering/Resolving]
  - Dehydration [Unknown]
  - Surgical failure [Unknown]
  - Device loosening [Recovered/Resolved]
  - Amnesia [Unknown]
  - Hyperkeratosis [Unknown]
  - Intentional product misuse [Unknown]
  - Skin abrasion [Unknown]
  - Nerve compression [Unknown]
  - Rheumatoid arthritis [Unknown]
  - Joint instability [Not Recovered/Not Resolved]
  - Sensitivity to weather change [Unknown]
  - Fall [Unknown]
  - Neuralgia [Unknown]
  - Knee arthroplasty [Unknown]
  - Muscle strain [Recovering/Resolving]
  - Muscular weakness [Recovering/Resolving]
  - Urinary tract infection [Unknown]
  - Pain in extremity [Recovered/Resolved]
  - Pain in extremity [Unknown]
  - Mobility decreased [Unknown]
  - Pain [Unknown]

NARRATIVE: CASE EVENT DATE: 2010
